FAERS Safety Report 4358994-9 (Version None)
Quarter: 2004Q2

REPORT INFORMATION
  Report Type: 
  Country: None (occurrence: None)
  Receive Date: 20040512
  Receipt Date: 20040427
  Transmission Date: 20050107
  Serious: Yes (Hospitalization)
  Sender: FDA-Public Use
  Company Number: T02-USA-00914-01

PATIENT
  Age: 82 Year
  Sex: Male
  Weight: 66.452 kg

DRUGS (18)
  1. MEMANTINE HCL [Suspect]
     Indication: DEMENTIA ALZHEIMER'S TYPE
     Dosage: 20 MG QD PO
     Route: 048
     Dates: start: 20020405
  2. MEMANTINE HCL [Suspect]
     Indication: DEMENTIA ALZHEIMER'S TYPE
     Dosage: 5 MG QHS PO
     Route: 048
     Dates: start: 20020313, end: 20020319
  3. MEMANTINE HCL [Suspect]
     Indication: DEMENTIA ALZHEIMER'S TYPE
     Dosage: 5 MG BID PO
     Route: 048
     Dates: start: 20020320, end: 20020326
  4. MEMANTINE HCL [Suspect]
     Indication: DEMENTIA ALZHEIMER'S TYPE
     Dosage: 5 MG QAM PO
     Route: 048
     Dates: start: 20020327, end: 20020404
  5. MEMANTINE HCL [Suspect]
     Indication: DEMENTIA ALZHEIMER'S TYPE
     Dosage: 10 MG QHS PO
     Route: 048
     Dates: start: 20020327, end: 20020404
  6. ACETYLSALICYLIC ACID SRT [Concomitant]
  7. LEVOTHYROXINE SODIUM [Concomitant]
  8. RAMIPRIL [Concomitant]
  9. DONEPEZIL HCL [Concomitant]
  10. ATORVASTATIN CALCIUM [Concomitant]
  11. ATENOLOL [Concomitant]
  12. QUETIAPINE (QUETIAPINE FUMARATE) [Concomitant]
  13. VITAMIN E [Concomitant]
  14. CENTRUM [Concomitant]
  15. OMEGA 3 (FISH OIL) [Concomitant]
  16. FEXOFENADINE HCL [Concomitant]
  17. ROFECOXIB [Concomitant]
  18. NIZATIDINE [Concomitant]

REACTIONS (17)
  - ANGINA PECTORIS [None]
  - BLOOD CREATINE PHOSPHOKINASE INCREASED [None]
  - BLOOD CREATINE PHOSPHOKINASE MB INCREASED [None]
  - BLOOD PRESSURE DIASTOLIC DECREASED [None]
  - CARDIAC MURMUR [None]
  - CARDIOMEGALY [None]
  - CAROTID BRUIT [None]
  - CONDITION AGGRAVATED [None]
  - CORONARY ARTERY DISEASE [None]
  - DYSPNOEA [None]
  - FEMORAL BRUIT [None]
  - HAEMATOCRIT DECREASED [None]
  - HEART RATE DECREASED [None]
  - MITRAL VALVE INCOMPETENCE [None]
  - RESPIRATORY RATE INCREASED [None]
  - SINUS BRADYCARDIA [None]
  - VASCULAR CALCIFICATION [None]
